FAERS Safety Report 7406502-8 (Version None)
Quarter: 2011Q2

REPORT INFORMATION
  Report Type: 
  Country: None (occurrence: None)
  Receive Date: 20110405
  Receipt Date: 20110405
  Transmission Date: 20111010
  Serious: Yes (Other)
  Sender: FDA-Public Use
  Company Number: None

PATIENT
  Age: 44 Year
  Sex: Male
  Weight: 83.9154 kg

DRUGS (2)
  1. SOTALOL HCL [Suspect]
     Indication: ATRIAL FIBRILLATION
     Dosage: 1 OR 2 IN 24 H, PILL IN POCKET AS NEEDED PO
     Route: 048
     Dates: start: 20110209, end: 20110315
  2. BISOPROLOL [Concomitant]

REACTIONS (1)
  - DYSURIA [None]
